FAERS Safety Report 8969194 (Version 1)
Quarter: 2012Q4

REPORT INFORMATION
  Report Type: 
  Country: US (occurrence: US)
  Receive Date: 20121218
  Receipt Date: 20121218
  Transmission Date: 20130627
  Serious: Yes (Other)
  Sender: FDA-Public Use
  Company Number: US-BRISTOL-MYERS SQUIBB COMPANY-16306870

PATIENT
  Sex: Female

DRUGS (9)
  1. ABILIFY [Suspect]
     Indication: DEPRESSION
     Route: 048
     Dates: start: 20111207
  2. PROZAC [Concomitant]
  3. SYNTHROID [Concomitant]
  4. NEXIUM [Concomitant]
  5. NORFLEX [Concomitant]
  6. CLARITIN [Concomitant]
  7. SKELAXIN [Concomitant]
  8. PREMARIN [Concomitant]
  9. CELEBREX [Concomitant]

REACTIONS (2)
  - Akathisia [Unknown]
  - Feeling jittery [Unknown]
